FAERS Safety Report 19181286 (Version 3)
Quarter: 2021Q2

REPORT INFORMATION
  Report Type: Spontaneous
  Country: US (occurrence: US)
  Receive Date: 20210426
  Receipt Date: 20210615
  Transmission Date: 20210717
  Serious: No
  Sender: FDA-Public Use
  Company Number: US-ASTRAZENECA-2021A327195

PATIENT
  Sex: Male

DRUGS (3)
  1. BYDUREON BCISE [Suspect]
     Active Substance: EXENATIDE
     Indication: DIABETES MELLITUS
     Route: 058
  2. METFORMIN [Concomitant]
     Active Substance: METFORMIN HYDROCHLORIDE
  3. BYDUREON [Suspect]
     Active Substance: EXENATIDE
     Indication: DIABETES MELLITUS
     Route: 058

REACTIONS (4)
  - Product dose omission issue [Unknown]
  - Wrong technique in product usage process [Unknown]
  - Device delivery system issue [Unknown]
  - Haemorrhage [Unknown]
